FAERS Safety Report 5077979-0 (Version None)
Quarter: 2006Q3

REPORT INFORMATION
  Report Type: 
  Country: None (occurrence: None)
  Receive Date: 20060811
  Receipt Date: 20060807
  Transmission Date: 20061208
  Serious: Yes (Life-Threatening, Other)
  Sender: FDA-Public Use
  Company Number: PHBS2006FR11867

PATIENT
  Age: 30 Year
  Sex: Female

DRUGS (2)
  1. OXYTOCIN [Suspect]
     Indication: UTERINE HAEMORRHAGE
     Route: 042
  2. SULPROSTONE [Suspect]

REACTIONS (7)
  - AMENORRHOEA [None]
  - HAEMOGLOBIN DECREASED [None]
  - NECROSIS [None]
  - POSTPARTUM HAEMORRHAGE [None]
  - PYREXIA [None]
  - THERAPEUTIC EMBOLISATION [None]
  - VAGINAL DISCHARGE [None]
